FAERS Safety Report 5737629-4 (Version None)
Quarter: 2008Q2

REPORT INFORMATION
  Report Type: 
  Country: None (occurrence: None)
  Receive Date: 20080512
  Receipt Date: 20080512
  Transmission Date: 20081010
  Serious: Yes (Life-Threatening)
  Sender: FDA-Public Use
  Company Number: None

PATIENT
  Age: 63 Year
  Sex: Male
  Weight: 95.2554 kg

DRUGS (1)
  1. MOVIPREP [Suspect]
     Indication: BOWEL PREPARATION
     Dosage: PEG-3350,  100G 1 LITER PER DAY 047
     Dates: start: 20080413

REACTIONS (12)
  - ABDOMINAL DISTENSION [None]
  - DIZZINESS [None]
  - DRUG INEFFECTIVE [None]
  - DYSPHAGIA [None]
  - HEART RATE DECREASED [None]
  - HYPERTENSION [None]
  - INSOMNIA [None]
  - NAUSEA [None]
  - PHARYNGOLARYNGEAL PAIN [None]
  - RETCHING [None]
  - SWELLING [None]
  - VOMITING [None]
